FAERS Safety Report 5323519-8 (Version None)
Quarter: 2007Q2

REPORT INFORMATION
  Report Type: 
  Country: None (occurrence: None)
  Receive Date: 20070509
  Receipt Date: 20070509
  Transmission Date: 20071010
  Serious: Yes (Hospitalization)
  Sender: FDA-Public Use
  Company Number: None

PATIENT

DRUGS (2)
  1. CITRATED CAFFEINE POWDER 500 GRAM SPECTRUM LABORATORIES [Suspect]
     Indication: INFANTILE APNOEIC ATTACK
     Dates: start: 20070301, end: 20070410
  2. CITRATED CAFFEINE POWDER 500 GRAM SPECTRUM LABORATORIES [Suspect]
     Indication: PREMATURE BABY
     Dates: start: 20070301, end: 20070410

REACTIONS (2)
  - DRUG LEVEL DECREASED [None]
  - PHARMACEUTICAL PRODUCT COMPLAINT [None]
